FAERS Safety Report 4405036-2 (Version None)
Quarter: 2004Q2

REPORT INFORMATION
  Report Type: 
  Country: None (occurrence: None)
  Receive Date: 20040621
  Receipt Date: 20040426
  Transmission Date: 20050107
  Serious: No
  Sender: FDA-Public Use
  Company Number: A-US2004-05959

PATIENT
  Age: 66 Year
  Sex: Female

DRUGS (5)
  1. TRACLEER [Suspect]
     Indication: PULMONARY HYPERTENSION
     Dosage: 62.5 MG, BID, ORAL; 125 MG, BID; 62.5 MG, BID
  2. ALLEGRA [Concomitant]
  3. AMBIEN [Concomitant]
  4. FLEXERIL [Concomitant]
  5. VIOXX [Concomitant]

REACTIONS (2)
  - EYELID OEDEMA [None]
  - NECK PAIN [None]
